FAERS Safety Report 6557981-X (Version None)
Quarter: 2010Q1

REPORT INFORMATION
  Report Type: 
  Country: None (occurrence: None)
  Receive Date: 20100126
  Receipt Date: 20100111
  Transmission Date: 20100710
  Serious: Yes (Death)
  Sender: FDA-Public Use
  Company Number: DSA_42450_2010

PATIENT
  Age: 39 Year
  Sex: Female

DRUGS (5)
  1. BUPROPION HYDROCHLORIDE [Suspect]
     Indication: DRUG USE FOR UNKNOWN INDICATION
     Dosage: (DF ORAL), (ORAL) (1 DAY UNTIL NOT CONTINUING)
     Route: 048
  2. LEVETIRACETAM [Suspect]
     Indication: DRUG USE FOR UNKNOWN INDICATION
     Dosage: (ORAL)
     Route: 048
  3. QUETIAPINE [Suspect]
     Indication: DRUG USE FOR UNKNOWN INDICATION
     Dosage: (ORAL)
     Route: 048
  4. PHENOBARBITAL TAB [Suspect]
     Indication: DRUG USE FOR UNKNOWN INDICATION
     Dosage: (ORAL)
     Route: 048
  5. TRAMADOL HYDROCHLORIDE [Suspect]
     Indication: DRUG USE FOR UNKNOWN INDICATION
     Dosage: (DF)

REACTIONS (2)
  - DRUG TOXICITY [None]
  - MULTIPLE DRUG OVERDOSE INTENTIONAL [None]
